FAERS Safety Report 12230840 (Version 2)
Quarter: 2016Q4

REPORT INFORMATION
  Report Type: Spontaneous
  Country: JP (occurrence: JP)
  Receive Date: 20160401
  Receipt Date: 20161003
  Transmission Date: 20170207
  Serious: Yes (Death, Other)
  Sender: FDA-Public Use
  Company Number: JP-MALLINCKRODT-T201601150

PATIENT
  Age: 62 Year
  Sex: Female

DRUGS (18)
  1. METHADONE [Suspect]
     Active Substance: METHADONE HYDROCHLORIDE
     Dosage: 20 MG (40 MG DAILY DOSE)
     Route: 048
     Dates: start: 20140415, end: 20140423
  2. METHADONE [Suspect]
     Active Substance: METHADONE HYDROCHLORIDE
     Dosage: 10 MG (30 MG DAILY DOSE)
     Route: 048
     Dates: start: 20140424, end: 20140613
  3. CYMBALTA [Concomitant]
     Active Substance: DULOXETINE HYDROCHLORIDE
     Indication: ANALGESIC THERAPY
     Dosage: 30 MG
     Route: 048
     Dates: end: 20140615
  4. DENOTAS [Concomitant]
     Active Substance: CALCIUM CARBONATE\CHOLECALCIFEROL\MAGNESIUM CARBONATE
     Dosage: 2 DF
     Route: 048
     Dates: end: 20140615
  5. TS-1 [Concomitant]
     Active Substance: GIMERACIL\OTERACIL\TEGAFUR
     Dosage: 4 DF
     Route: 048
     Dates: end: 20140421
  6. RANMARK [Concomitant]
     Active Substance: DENOSUMAB
     Dosage: 120 MG
     Route: 058
     Dates: end: 20140428
  7. ADONA [Concomitant]
     Active Substance: CARBAZOCHROME SODIUM SULFONATE
     Dosage: 10 MG
     Route: 048
     Dates: end: 20140615
  8. METHADONE [Suspect]
     Active Substance: METHADONE HYDROCHLORIDE
     Indication: CANCER PAIN
     Dosage: 10 MG (30 MG DAILY DOSE)
     Route: 048
     Dates: start: 20140401, end: 20140414
  9. TRANSAMIN [Concomitant]
     Active Substance: TRANEXAMIC ACID
     Dosage: 250 MG
     Route: 048
     Dates: end: 20140615
  10. AMBROXOL HYDROCHLORIDE [Concomitant]
     Active Substance: AMBROXOL HYDROCHLORIDE
     Dosage: 45 MG
     Route: 048
     Dates: end: 20140615
  11. MAGMITT [Concomitant]
     Active Substance: MAGNESIUM OXIDE
     Dosage: 1980 MG
     Route: 048
     Dates: end: 20140615
  12. CARBAZOCHROME SULFONATE NA [Concomitant]
     Dosage: 30 MG
     Route: 048
     Dates: end: 20140615
  13. LYRICA [Concomitant]
     Active Substance: PREGABALIN
     Indication: ANALGESIC THERAPY
     Dosage: 150 MG
     Route: 048
     Dates: end: 20140615
  14. CALONAL [Concomitant]
     Active Substance: ACETAMINOPHEN
     Indication: ANALGESIC THERAPY
     Dosage: 12 DF
     Route: 048
     Dates: end: 20140615
  15. LOXOPROFEN [Concomitant]
     Active Substance: LOXOPROFEN
     Indication: ANALGESIC THERAPY
     Dosage: 180 MG
     Route: 048
     Dates: end: 20140615
  16. OXINORM [Concomitant]
     Active Substance: OXYCODONE HYDROCHLORIDE
     Indication: ANALGESIC THERAPY
     Dosage: 20-30 MG PRN
     Route: 048
     Dates: start: 20140331
  17. PARIET [Concomitant]
     Active Substance: RABEPRAZOLE SODIUM
     Dosage: 10 MG
     Route: 048
     Dates: end: 20140615
  18. RAYNANON [Concomitant]
     Indication: ANALGESIC THERAPY
     Dosage: UNK
     Route: 062
     Dates: start: 20140521, end: 20140521

REACTIONS (6)
  - Lung adenocarcinoma stage IV [Fatal]
  - Somnolence [Recovering/Resolving]
  - Decreased appetite [Not Recovered/Not Resolved]
  - Blood potassium increased [Recovered/Resolved]
  - Delirium [Not Recovered/Not Resolved]
  - Dehydration [Recovered/Resolved]

NARRATIVE: CASE EVENT DATE: 20140417
